FAERS Safety Report 5693141-2 (Version None)
Quarter: 2008Q2

REPORT INFORMATION
  Report Type: 
  Country: None (occurrence: None)
  Receive Date: 20080402
  Receipt Date: 20080402
  Transmission Date: 20081010
  Serious: Yes (Other)
  Sender: FDA-Public Use
  Company Number: None

PATIENT
  Age: 3 Year
  Sex: Male
  Weight: 22.6799 kg

DRUGS (1)
  1. SINGULAIR [Suspect]
     Indication: ASTHMA
     Dosage: 1 CHEWABLE PILL 1 TIME A DAY PO
     Route: 048
     Dates: start: 20030401, end: 20080328

REACTIONS (9)
  - ABDOMINAL PAIN UPPER [None]
  - AGGRESSION [None]
  - DEPRESSION [None]
  - DISTURBANCE IN ATTENTION [None]
  - GENERALISED ANXIETY DISORDER [None]
  - HEADACHE [None]
  - INSOMNIA [None]
  - MOOD SWINGS [None]
  - SELF INJURIOUS BEHAVIOUR [None]
